FAERS Safety Report 4343507-8 (Version None)
Quarter: 2004Q2

REPORT INFORMATION
  Report Type: 
  Country: None (occurrence: None)
  Receive Date: 20040422
  Receipt Date: 20040323
  Transmission Date: 20050107
  Serious: Yes (Hospitalization, Disabling, Other)
  Sender: FDA-Public Use
  Company Number: PHBS2004JP04050

PATIENT
  Age: 51 Year
  Sex: Male
  Weight: 69 kg

DRUGS (3)
  1. DIOVAN [Suspect]
     Indication: HYPERTENSION
     Dosage: 80 MG, QD
     Route: 048
     Dates: start: 20031230
  2. ADALAT [Suspect]
     Indication: HYPERTENSION
     Dosage: 20 MG, BID
     Route: 048
     Dates: start: 20031029
  3. MEILAX [Concomitant]
     Indication: AUTONOMIC NERVOUS SYSTEM IMBALANCE
     Dosage: 1 MG, BID
     Route: 048
     Dates: start: 20031029

REACTIONS (4)
  - CEREBRAL HAEMORRHAGE [None]
  - CIRCULATORY COLLAPSE [None]
  - HYPERTENSION [None]
  - PARALYSIS [None]
